FAERS Safety Report 4937111-8 (Version None)
Quarter: 2006Q1

REPORT INFORMATION
  Report Type: 
  Country: None (occurrence: None)
  Receive Date: 20060302
  Receipt Date: 20060216
  Transmission Date: 20060701
  Serious: Yes (Life-Threatening)
  Sender: FDA-Public Use
  Company Number: 33929

PATIENT
  Age: 67 Year
  Sex: Female

DRUGS (2)
  1. CHLORAMPHENICOL [Suspect]
     Indication: CONJUNCTIVITIS
     Dosage: 1 GTT TID  OPHT
     Route: 047
     Dates: start: 20051201
  2. GUAIFENESIN [Concomitant]

REACTIONS (1)
  - PANCYTOPENIA [None]
